FAERS Safety Report 24667624 (Version 1)
Quarter: 2024Q4

REPORT INFORMATION
  Report Type: Spontaneous
  Country: US (occurrence: US)
  Receive Date: 20241126
  Receipt Date: 20241126
  Transmission Date: 20250114
  Serious: Yes (Death)
  Sender: AMGEN
  Company Number: US-AMGEN-USASP2024230311

PATIENT
  Sex: Male

DRUGS (1)
  1. RAVICTI [Suspect]
     Active Substance: GLYCEROL PHENYLBUTYRATE
     Indication: Urea cycle disorder
     Dosage: 5.8 MILLILITER, TID
     Route: 048
     Dates: start: 202004

REACTIONS (1)
  - Death [Fatal]
